FAERS Safety Report 6940029-2 (Version None)
Quarter: 2010Q3

REPORT INFORMATION
  Report Type: 
  Country: None (occurrence: None)
  Receive Date: 20100825
  Receipt Date: 20100813
  Transmission Date: 20110219
  Serious: Yes (Other)
  Sender: FDA-Public Use
  Company Number: US-PFIZER INC-2009171454

PATIENT
  Sex: Female
  Weight: 110 kg

DRUGS (3)
  1. LYRICA [Suspect]
     Indication: FIBROMYALGIA
     Dosage: 100 MG, 2X/DAY
     Dates: start: 20081101, end: 20090101
  2. PREMARIN [Concomitant]
     Dosage: UNK
  3. SYNTHROID [Concomitant]
     Dosage: UNK

REACTIONS (5)
  - AMNESIA [None]
  - OEDEMA PERIPHERAL [None]
  - TONGUE DISORDER [None]
  - VISION BLURRED [None]
  - WEIGHT INCREASED [None]
